FAERS Safety Report 20973364 (Version 2)
Quarter: 2022Q3

REPORT INFORMATION
  Report Type: Spontaneous
  Country: ES (occurrence: ES)
  Receive Date: 20220617
  Receipt Date: 20220708
  Transmission Date: 20221027
  Serious: Yes (Other)
  Sender: FDA-Public Use
  Company Number: ES-JNJFOC-20220613041

PATIENT
  Age: 49 Year
  Sex: Female

DRUGS (2)
  1. SPRAVATO [Suspect]
     Active Substance: ESKETAMINE
     Indication: Depression
     Dosage: EVENT DOSE
  2. SPRAVATO [Suspect]
     Active Substance: ESKETAMINE
     Dosage: CURRENT DOSE

REACTIONS (1)
  - Visual acuity reduced [Unknown]
